FAERS Safety Report 5534458-1 (Version None)
Quarter: 2007Q4

REPORT INFORMATION
  Report Type: 
  Country: None (occurrence: None)
  Receive Date: 20071205
  Receipt Date: 20071128
  Transmission Date: 20080405
  Serious: Yes (Other)
  Sender: FDA-Public Use
  Company Number: B0498231A

PATIENT
  Age: 94 Year
  Sex: Female

DRUGS (3)
  1. AUGMENTIN '125' [Suspect]
     Indication: DRUG USE FOR UNKNOWN INDICATION
     Dosage: 1G TWICE PER DAY
     Route: 048
     Dates: start: 20071008, end: 20071019
  2. ACENOCOUMAROL [Suspect]
     Dosage: 1MG TWICE PER DAY
     Route: 048
     Dates: start: 20071005, end: 20071015
  3. OFLOCET [Suspect]
     Dosage: 200MG PER DAY
     Route: 048
     Dates: start: 20071009, end: 20071016

REACTIONS (2)
  - DRUG INTERACTION [None]
  - INTERNATIONAL NORMALISED RATIO INCREASED [None]
